FAERS Safety Report 5005475-5 (Version None)
Quarter: 2006Q2

REPORT INFORMATION
  Report Type: 
  Country: None (occurrence: None)
  Receive Date: 20060518
  Receipt Date: 20050414
  Transmission Date: 20061013
  Serious: Yes (Hospitalization, Other)
  Sender: FDA-Public Use
  Company Number: US-MERCK-0504USA02972

PATIENT
  Age: 42 Year
  Sex: Female

DRUGS (9)
  1. VIOXX [Suspect]
     Route: 048
     Dates: start: 20021219, end: 20040717
  2. NEURONTIN [Concomitant]
     Indication: DIZZINESS
     Route: 065
  3. NEURONTIN [Concomitant]
     Route: 065
  4. PROZAC [Concomitant]
     Indication: DEPRESSION
     Route: 065
  5. CLONAZEPAM [Concomitant]
     Indication: LOSS OF CONSCIOUSNESS
     Route: 065
  6. HYDROCODONE HYDROCHLORIDE [Concomitant]
     Indication: FIBROMYALGIA
     Route: 065
  7. ELAVIL [Concomitant]
     Indication: BLOOD DISORDER
     Route: 065
  8. SKELAXIN [Concomitant]
     Indication: NEURALGIA
     Route: 065
  9. INDAPAMIDE [Concomitant]
     Indication: OEDEMA
     Route: 065

REACTIONS (30)
  - ANXIETY [None]
  - APPENDIX DISORDER [None]
  - ARTERIOSCLEROSIS CORONARY ARTERY [None]
  - BLOOD DISORDER [None]
  - BRONCHITIS [None]
  - CARDIAC DISORDER [None]
  - CARDIOMYOPATHY [None]
  - CHEST DISCOMFORT [None]
  - CHEST PAIN [None]
  - DIASTOLIC DYSFUNCTION [None]
  - DILATATION VENTRICULAR [None]
  - DIVERTICULUM [None]
  - DRUG HYPERSENSITIVITY [None]
  - DYSPNOEA EXERTIONAL [None]
  - ECTOPIC PREGNANCY [None]
  - EYE DISORDER [None]
  - GASTRIC DISORDER [None]
  - HAEMORRHOIDS [None]
  - HYPERLIPIDAEMIA [None]
  - HYPOAESTHESIA [None]
  - INTESTINAL OBSTRUCTION [None]
  - ISCHAEMIA [None]
  - KIDNEY ENLARGEMENT [None]
  - MIGRAINE [None]
  - NERVOUS SYSTEM DISORDER [None]
  - NEURALGIA [None]
  - NON-CARDIAC CHEST PAIN [None]
  - OEDEMA [None]
  - VENTRICULAR HYPOKINESIA [None]
  - VERTIGO [None]
